FAERS Safety Report 10374679 (Version 1)
Quarter: 2014Q3

REPORT INFORMATION
  Report Type: Spontaneous
  Country: US (occurrence: US)
  Receive Date: 20140811
  Receipt Date: 20140811
  Transmission Date: 20150326
  Serious: No
  Sender: FDA-Public Use
  Company Number: US-TEVA-487424USA

PATIENT
  Sex: Female
  Weight: 86.26 kg

DRUGS (9)
  1. PROGESTERONE. [Suspect]
     Active Substance: PROGESTERONE
     Dosage: 100 MILLIGRAM DAILY;
     Dates: start: 2011, end: 2011
  2. PROMETRIUM [Suspect]
     Active Substance: PROGESTERONE
     Indication: HOT FLUSH
     Dosage: 100 MILLIGRAM DAILY;
     Dates: start: 2007, end: 2008
  3. LEVOTHYROXINE [Concomitant]
     Active Substance: LEVOTHYROXINE
     Indication: HYPOTHYROIDISM
  4. PROGESTERONE. [Suspect]
     Active Substance: PROGESTERONE
     Indication: HOT FLUSH
     Dosage: 200 MILLIGRAM DAILY;
     Dates: start: 2011, end: 2011
  5. PROMETRIUM [Suspect]
     Active Substance: PROGESTERONE
     Dosage: 200 MILLIGRAM DAILY;
     Dates: start: 2011
  6. VYTORIN [Concomitant]
     Active Substance: EZETIMIBE\SIMVASTATIN
     Indication: BLOOD CHOLESTEROL INCREASED
  7. PROMETRIUM [Suspect]
     Active Substance: PROGESTERONE
     Dosage: 200 MILLIGRAM DAILY;
     Dates: start: 2008, end: 2011
  8. ESTROGEN [Concomitant]
     Active Substance: ESTRONE\SUS SCROFA OVARY
     Indication: PRODUCT USED FOR UNKNOWN INDICATION
     Route: 062
  9. RECLAST [Concomitant]
     Active Substance: ZOLEDRONIC ACID
     Indication: BONE DENSITY ABNORMAL
     Route: 042

REACTIONS (3)
  - Burning sensation [Recovered/Resolved]
  - Gait disturbance [Recovered/Resolved]
  - Pain in extremity [Recovered/Resolved]

NARRATIVE: CASE EVENT DATE: 2011
